FAERS Safety Report 20425210 (Version 1)
Quarter: 2022Q1

REPORT INFORMATION
  Report Type: Report from Study
  Country: US (occurrence: US)
  Receive Date: 20220204
  Receipt Date: 20220204
  Transmission Date: 20220423
  Serious: No
  Sender: FDA-Public Use
  Company Number: US-EXELIXIS-CABO-21037149

PATIENT
  Age: 60 Year
  Sex: Male

DRUGS (9)
  1. CABOMETYX [Suspect]
     Active Substance: CABOZANTINIB S-MALATE
     Indication: Renal cancer
     Dosage: 60 MG, QD (20 MG X 3 TABLETS)
     Route: 048
     Dates: start: 20201204
  2. ATORVASTATIN [Concomitant]
     Active Substance: ATORVASTATIN
  3. BRIMONIDINE [Concomitant]
     Active Substance: BRIMONIDINE TARTRATE
  4. DORZOLAMIDE\TIMOLOL [Concomitant]
     Active Substance: DORZOLAMIDE\TIMOLOL
  5. ENALAPRIL [Concomitant]
     Active Substance: ENALAPRIL
  6. GLIMEPIRIDE [Concomitant]
     Active Substance: GLIMEPIRIDE
  7. LANTUS [Concomitant]
     Active Substance: INSULIN GLARGINE
  8. LATANOPROST [Concomitant]
     Active Substance: LATANOPROST
  9. METFORMIN [Concomitant]
     Active Substance: METFORMIN HYDROCHLORIDE

REACTIONS (17)
  - Insomnia [Unknown]
  - Sensitive skin [Unknown]
  - Rhinorrhoea [Unknown]
  - Taste disorder [Unknown]
  - Palmar-plantar erythrodysaesthesia syndrome [Unknown]
  - Blood glucose increased [Unknown]
  - Decreased appetite [Unknown]
  - Diarrhoea [Unknown]
  - Fatigue [Unknown]
  - Hypertension [Unknown]
  - Stomatitis [Unknown]
  - Nausea [Unknown]
  - Rash [Unknown]
  - Dysphonia [Unknown]
  - Rash erythematous [Unknown]
  - Dyspepsia [Unknown]
  - Arthralgia [Unknown]

NARRATIVE: CASE EVENT DATE: 20210115
